FAERS Safety Report 25269379 (Version 1)
Quarter: 2025Q2

REPORT INFORMATION
  Report Type: Spontaneous
  Country: US (occurrence: US)
  Receive Date: 20250505
  Receipt Date: 20250505
  Transmission Date: 20250717
  Serious: Yes (Other)
  Sender: SANOFI AVENTIS
  Company Number: US-SA-2025SA125130

PATIENT
  Age: 10 Year
  Sex: Male
  Weight: 75.91 kg

DRUGS (1)
  1. DUPIXENT [Suspect]
     Active Substance: DUPILUMAB
     Indication: Dermatitis atopic
     Dosage: 300 MG, QOW
     Route: 058

REACTIONS (7)
  - Skin laceration [Unknown]
  - Peripheral swelling [Unknown]
  - Pain in jaw [Unknown]
  - Skin discolouration [Unknown]
  - Hair growth abnormal [Unknown]
  - Skin haemorrhage [Unknown]
  - Dermatitis atopic [Unknown]
